FAERS Safety Report 7953634-1 (Version None)
Quarter: 2011Q4

REPORT INFORMATION
  Report Type: 
  Country: None (occurrence: None)
  Receive Date: 20111202
  Receipt Date: 20111118
  Transmission Date: 20120403
  Serious: Yes (Hospitalization, Other)
  Sender: FDA-Public Use
  Company Number: US-ELI_LILLY_AND_COMPANY-US201001000633

PATIENT
  Sex: Female
  Weight: 97.506 kg

DRUGS (4)
  1. HUMALOG [Concomitant]
     Indication: TYPE 2 DIABETES MELLITUS
     Dosage: UNK, AS NEEDED
  2. BYETTA [Suspect]
     Indication: TYPE 2 DIABETES MELLITUS
     Dosage: 5 UG, 2/D
     Dates: start: 20060101, end: 20090511
  3. LANTUS [Concomitant]
     Indication: TYPE 2 DIABETES MELLITUS
     Dosage: 50 U, EACH EVENING
     Route: 058
  4. SYNTHROID [Concomitant]
     Dosage: 0.5 UG, EACH MORNING

REACTIONS (16)
  - HEPATIC FAILURE [None]
  - MALAISE [None]
  - OFF LABEL USE [None]
  - RENAL FAILURE ACUTE [None]
  - CATHETER SITE INFECTION [None]
  - PYREXIA [None]
  - ACIDOSIS [None]
  - HOSPITALISATION [None]
  - GENERAL PHYSICAL HEALTH DETERIORATION [None]
  - VOMITING [None]
  - ASTHENIA [None]
  - PANCREATITIS [None]
  - THROMBOCYTOPENIA [None]
  - HEPATIC CIRRHOSIS [None]
  - WEIGHT DECREASED [None]
  - CHOLECYSTECTOMY [None]
